FAERS Safety Report 22316444 (Version 4)
Quarter: 2023Q2

REPORT INFORMATION
  Report Type: Report from Study
  Country: US (occurrence: None)
  Receive Date: 20230513
  Receipt Date: 20230619
  Transmission Date: 20230722
  Serious: Yes (Other)
  Sender: FDA-Public Use
  Company Number: US-ROCHE-3297836

PATIENT
  Age: 66 Year
  Sex: Female
  Weight: 75 kg

DRUGS (25)
  1. RANIBIZUMAB [Suspect]
     Active Substance: RANIBIZUMAB
     Indication: Diabetic retinal oedema
     Dosage: DOSE OF STUDY DRUG FIRST ADMINISTERED 10 MG/ML?DOSE LAST STUDY DRUG ADMIN PRIOR AE 0.5 MG/ML?FREQUEN
     Route: 050
     Dates: start: 20200213
  2. RANIBIZUMAB [Suspect]
     Active Substance: RANIBIZUMAB
  3. RANIBIZUMAB [Suspect]
     Active Substance: RANIBIZUMAB
  4. RANIBIZUMAB [Suspect]
     Active Substance: RANIBIZUMAB
  5. RANIBIZUMAB [Suspect]
     Active Substance: RANIBIZUMAB
  6. CRESTOR [Concomitant]
     Active Substance: ROSUVASTATIN CALCIUM
     Indication: Hypercholesterolaemia
     Dates: start: 2012
  7. TOPROL XL [Concomitant]
     Active Substance: METOPROLOL SUCCINATE
     Indication: Hypertension
     Dates: start: 2014
  8. TOPROL XL [Concomitant]
     Active Substance: METOPROLOL SUCCINATE
     Dates: start: 20200903
  9. VITAMIN D3 [Concomitant]
     Active Substance: CHOLECALCIFEROL
     Indication: Rheumatoid arthritis
     Dates: start: 2018
  10. SERTRALINE [Concomitant]
     Active Substance: SERTRALINE HYDROCHLORIDE
     Indication: Depression
     Dates: start: 2012
  11. FOLIC ACID [Concomitant]
     Active Substance: FOLIC ACID
     Indication: Osteoarthritis
     Dates: start: 202002
  12. CLOPIDOGREL [Concomitant]
     Active Substance: CLOPIDOGREL BISULFATE
     Dates: start: 20200710
  13. EZETIMIBE [Concomitant]
     Active Substance: EZETIMIBE
     Dates: start: 202006
  14. TOUJEO [Concomitant]
     Active Substance: INSULIN GLARGINE
     Dates: start: 20200923
  15. HYDROCHLOROTHIAZIDE [Concomitant]
     Active Substance: HYDROCHLOROTHIAZIDE
     Dates: start: 20210102
  16. HYDROXYCHLOROQUINE [Concomitant]
     Active Substance: HYDROXYCHLOROQUINE
     Route: 048
     Dates: start: 20210916
  17. OMEPRAZOLE [Concomitant]
     Active Substance: OMEPRAZOLE
     Indication: Gastrooesophageal reflux disease
     Route: 048
     Dates: start: 20220402
  18. JARDIANCE [Concomitant]
     Active Substance: EMPAGLIFLOZIN
     Indication: Type 2 diabetes mellitus
     Dates: start: 20220723
  19. CIPROFLOXACIN [Concomitant]
     Active Substance: CIPROFLOXACIN
     Route: 047
     Dates: start: 20220922, end: 20220926
  20. HUMALOG [Concomitant]
     Active Substance: INSULIN LISPRO
     Indication: Type 2 diabetes mellitus
     Route: 058
     Dates: start: 202203
  21. CALCITRIOL [Concomitant]
     Active Substance: CALCITRIOL
     Indication: Vitamin D deficiency
     Dates: start: 20220711
  22. RANIBIZUMAB [Concomitant]
     Active Substance: RANIBIZUMAB
     Dosage: DOSE OF STUDY DRUG FIRST ADMINISTERED: 6 MG/ML
     Route: 050
     Dates: start: 20230504
  23. AMOXICILLIN [Concomitant]
     Active Substance: AMOXICILLIN
     Indication: Skin infection
     Dosage: 500 OTHER
     Route: 048
     Dates: start: 20230225, end: 20230306
  24. AMOXICILLIN [Concomitant]
     Active Substance: AMOXICILLIN
     Indication: Skin infection
  25. OZEMPIC [Concomitant]
     Active Substance: SEMAGLUTIDE
     Indication: Type 2 diabetes mellitus
     Dosage: 0.25 OTHER
     Route: 030
     Dates: start: 20230424

REACTIONS (2)
  - Device issue [Unknown]
  - No adverse event [Unknown]

NARRATIVE: CASE EVENT DATE: 20220922
